FAERS Safety Report 10086382 (Version 1)
Quarter: 2014Q2

REPORT INFORMATION
  Report Type: Spontaneous
  Country: US (occurrence: None)
  Receive Date: 20140416
  Receipt Date: 20140416
  Transmission Date: 20141212
  Serious: Yes (Other)
  Sender: FDA-Public Use
  Company Number: C14 013 AE

PATIENT
  Age: 3 Month
  Sex: Female
  Weight: 6.36 kg

DRUGS (1)
  1. FIRST OMEPRAZOLE RX [Suspect]
     Indication: GASTROOESOPHAGEAL REFLUX DISEASE
     Route: 048
     Dates: start: 20140402, end: 20140403

REACTIONS (3)
  - Mucous stools [None]
  - Haematochezia [None]
  - Hypersensitivity [None]
